FAERS Safety Report 20153822 (Version 1)
Quarter: 2021Q4

REPORT INFORMATION
  Report Type: Spontaneous
  Country: FR (occurrence: FR)
  Receive Date: 20211207
  Receipt Date: 20211207
  Transmission Date: 20220303
  Serious: Yes (Other)
  Sender: FDA-Public Use
  Company Number: FR-SAMSUNG BIOEPIS-SB-2021-27901

PATIENT
  Sex: Male

DRUGS (26)
  1. INFLIXIMAB [Suspect]
     Active Substance: INFLIXIMAB
     Indication: Polychondritis
     Dosage: UNKNOWN
     Route: 065
  2. INFLIXIMAB [Suspect]
     Active Substance: INFLIXIMAB
     Indication: Acute febrile neutrophilic dermatosis
  3. PROLEUKIN [Suspect]
     Active Substance: ALDESLEUKIN
     Indication: Myelodysplastic syndrome
     Dosage: 1-1.5 MILLION UNITS FOR FIVE CONSECUTIVE DAYS (INDUCTION DOSE)
     Route: 065
  4. PROLEUKIN [Suspect]
     Active Substance: ALDESLEUKIN
     Indication: Acute febrile neutrophilic dermatosis
     Dosage: 1 MIU (MAINTENANCE DOSE)
     Route: 065
  5. PROLEUKIN [Suspect]
     Active Substance: ALDESLEUKIN
     Indication: Polychondritis
     Dosage: UNKNOWN
     Route: 065
  6. AZACITIDINE [Suspect]
     Active Substance: AZACITIDINE
     Indication: Myelodysplastic syndrome
     Dosage: UNKNOWN
     Route: 065
  7. AZACITIDINE [Suspect]
     Active Substance: AZACITIDINE
     Dosage: UNKNOWN
     Route: 065
  8. ANAKINRA [Concomitant]
     Active Substance: ANAKINRA
     Indication: Polychondritis
     Dosage: UNKNOWN
     Route: 065
  9. ANAKINRA [Concomitant]
     Active Substance: ANAKINRA
     Indication: Acute febrile neutrophilic dermatosis
  10. AZATHIOPRINE [Concomitant]
     Active Substance: AZATHIOPRINE
     Indication: Acute febrile neutrophilic dermatosis
     Dosage: UNKNOWN
     Route: 065
  11. AZATHIOPRINE [Concomitant]
     Active Substance: AZATHIOPRINE
     Indication: Polychondritis
  12. COLCHICINE [Concomitant]
     Active Substance: COLCHICINE
     Indication: Acute febrile neutrophilic dermatosis
     Dosage: UNKNOWN
     Route: 065
  13. COLCHICINE [Concomitant]
     Active Substance: COLCHICINE
     Indication: Polychondritis
  14. DAPSONE\FERROUS OXALATE [Concomitant]
     Active Substance: DAPSONE\FERROUS OXALATE
     Indication: Polychondritis
     Dosage: UNKNOWN
     Route: 065
  15. DAPSONE\FERROUS OXALATE [Concomitant]
     Active Substance: DAPSONE\FERROUS OXALATE
     Indication: Acute febrile neutrophilic dermatosis
  16. TOCILIZUMAB [Concomitant]
     Active Substance: TOCILIZUMAB
     Indication: Acute febrile neutrophilic dermatosis
     Dosage: UNKNOWN
     Route: 065
  17. TOCILIZUMAB [Concomitant]
     Active Substance: TOCILIZUMAB
     Indication: Polychondritis
  18. HYDROXYCHLOROQUINE [Concomitant]
     Active Substance: HYDROXYCHLOROQUINE
     Indication: Acute febrile neutrophilic dermatosis
     Dosage: UNKNOWN
     Route: 065
  19. HYDROXYCHLOROQUINE [Concomitant]
     Active Substance: HYDROXYCHLOROQUINE
     Indication: Polychondritis
  20. THALIDOMIDE [Concomitant]
     Active Substance: THALIDOMIDE
     Indication: Acute febrile neutrophilic dermatosis
     Dosage: UNKNOWN
     Route: 065
  21. THALIDOMIDE [Concomitant]
     Active Substance: THALIDOMIDE
     Indication: Polychondritis
  22. PREDNISONE [Concomitant]
     Active Substance: PREDNISONE
     Indication: Myelodysplastic syndrome
     Route: 065
  23. PREDNISONE [Concomitant]
     Active Substance: PREDNISONE
     Route: 065
  24. PREDNISONE [Concomitant]
     Active Substance: PREDNISONE
     Route: 065
  25. PREDNISONE [Concomitant]
     Active Substance: PREDNISONE
     Route: 065
  26. Recombinant EPO [Concomitant]
     Indication: Myelodysplastic syndrome
     Dosage: UNKNOWN. SIX CYCLES
     Route: 065

REACTIONS (6)
  - Polychondritis [Recovering/Resolving]
  - Acute febrile neutrophilic dermatosis [Recovering/Resolving]
  - Lung disorder [Unknown]
  - Infusion site reaction [Unknown]
  - Ill-defined disorder [Unknown]
  - Off label use [Unknown]
